FAERS Safety Report 5852664-3 (Version None)
Quarter: 2008Q3

REPORT INFORMATION
  Report Type: 
  Country: None (occurrence: None)
  Receive Date: 20080821
  Receipt Date: 20080815
  Transmission Date: 20090109
  Serious: Yes (Hospitalization)
  Sender: FDA-Public Use
  Company Number: B0533908A

PATIENT
  Age: 51 Year
  Sex: Male
  Weight: 71 kg

DRUGS (9)
  1. AUGMENTIN '125' [Suspect]
     Indication: PNEUMONIA BACTERIAL
     Dosage: 1G TWICE PER DAY
     Route: 048
     Dates: start: 20080718, end: 20080726
  2. SORTIS [Suspect]
     Indication: DRUG USE FOR UNKNOWN INDICATION
     Dosage: 80MG PER DAY
     Route: 048
     Dates: start: 20080715, end: 20080730
  3. ASPIRIN [Concomitant]
     Dosage: 100MG PER DAY
     Route: 048
     Dates: start: 20080715
  4. PLAVIX [Concomitant]
     Dosage: 75MG PER DAY
     Route: 048
     Dates: start: 20080715
  5. DILATREND [Concomitant]
     Dosage: 6.25MG PER DAY
     Route: 048
     Dates: start: 20080715
  6. RAMIPRIL [Concomitant]
     Dosage: 1.25MG PER DAY
     Route: 048
     Dates: start: 20080715
  7. TOREM [Concomitant]
     Dosage: 10MG PER DAY
     Route: 048
     Dates: start: 20080715
  8. LEXOTANIL [Concomitant]
     Dosage: 3MG TWICE PER DAY
     Route: 048
     Dates: start: 20080715
  9. FRAXIPARINE [Concomitant]
     Dosage: .6ML PER DAY
     Route: 058
     Dates: start: 20080715

REACTIONS (9)
  - ALANINE AMINOTRANSFERASE INCREASED [None]
  - ASPARTATE AMINOTRANSFERASE INCREASED [None]
  - BLOOD ALKALINE PHOSPHATASE INCREASED [None]
  - BLOOD BILIRUBIN ABNORMAL [None]
  - BLOOD CREATININE INCREASED [None]
  - BRAIN NATRIURETIC PEPTIDE ABNORMAL [None]
  - DRUG TOXICITY [None]
  - GAMMA-GLUTAMYLTRANSFERASE INCREASED [None]
  - MIXED LIVER INJURY [None]
